FAERS Safety Report 7537419-6 (Version None)
Quarter: 2011Q2

REPORT INFORMATION
  Report Type: 
  Country: None (occurrence: None)
  Receive Date: 20110609
  Receipt Date: 20110606
  Transmission Date: 20111010
  Serious: Yes (Hospitalization)
  Sender: FDA-Public Use
  Company Number: JP-ABBOTT-10P-087-0689721-00

PATIENT
  Sex: Female
  Weight: 50.1 kg

DRUGS (6)
  1. HUMIRA [Suspect]
     Indication: RHEUMATOID ARTHRITIS
     Route: 058
     Dates: start: 20100831, end: 20101102
  2. SULFAMETHOXAZOLE AND TRIMETHOPRIM [Suspect]
     Route: 048
     Dates: start: 20101121, end: 20101126
  3. ISONIAZID [Concomitant]
     Indication: ANTIBIOTIC PROPHYLAXIS
     Route: 048
     Dates: start: 20100831, end: 20101121
  4. FOLIC ACID [Concomitant]
     Indication: PROPHYLAXIS
     Route: 048
     Dates: start: 20090623, end: 20101121
  5. METHOTREXATE [Suspect]
     Indication: RHEUMATOID ARTHRITIS
     Route: 048
     Dates: start: 20090623, end: 20101121
  6. FOLIC ACID [Concomitant]
     Indication: ADVERSE REACTION

REACTIONS (4)
  - NAUSEA [None]
  - DECREASED APPETITE [None]
  - PNEUMOCYSTIS JIROVECI PNEUMONIA [None]
  - VOMITING [None]
